FAERS Safety Report 17387168 (Version 1)
Quarter: 2020Q1

REPORT INFORMATION
  Report Type: Spontaneous
  Country: US (occurrence: US)
  Receive Date: 20200206
  Receipt Date: 20200206
  Transmission Date: 20200409
  Serious: Yes (Other)
  Sender: FDA-Public Use
  Company Number: NVSC2020US025956

PATIENT
  Sex: Female

DRUGS (2)
  1. LETROZOLE. [Suspect]
     Active Substance: LETROZOLE
     Indication: BREAST CANCER
     Dosage: 125 MG, QD(BY MOUTH)
     Route: 048
     Dates: start: 20190726
  2. IBRANCE [Suspect]
     Active Substance: PALBOCICLIB
     Indication: BREAST CANCER
     Dosage: 125 MG(BY MOUTH)
     Route: 048

REACTIONS (5)
  - Decreased appetite [Unknown]
  - White blood cell count decreased [Unknown]
  - Hot flush [Unknown]
  - Nausea [Unknown]
  - Dizziness [Unknown]
